FAERS Safety Report 7139140-5 (Version None)
Quarter: 2010Q4

REPORT INFORMATION
  Report Type: 
  Country: None (occurrence: None)
  Receive Date: 20101206
  Receipt Date: 20101124
  Transmission Date: 20110411
  Serious: Yes (Hospitalization, Other)
  Sender: FDA-Public Use
  Company Number: PHHY2010CH73072

PATIENT
  Sex: Female

DRUGS (6)
  1. FEMARA [Suspect]
     Indication: BREAST CANCER
     Dosage: 2.5 MG, DAILY
     Dates: start: 20090820, end: 20100215
  2. AROMASIN [Suspect]
     Dosage: UNK
     Dates: end: 20100707
  3. TAMOXIFEN CITRATE [Suspect]
     Dosage: UNK
     Dates: start: 20100715
  4. NEBIVOLOL HCL [Concomitant]
     Indication: HYPERTENSION
     Dosage: UNK
  5. TOREM [Concomitant]
     Indication: HYPERTENSION
     Dosage: UNK
  6. MADOPAR [Concomitant]
     Indication: RESTLESS LEGS SYNDROME

REACTIONS (9)
  - ARRHYTHMIA [None]
  - ARTHRALGIA [None]
  - CHEST PAIN [None]
  - COUGH [None]
  - DRUG INTOLERANCE [None]
  - FATIGUE [None]
  - INSOMNIA [None]
  - SYNCOPE [None]
  - THROMBOPHLEBITIS SUPERFICIAL [None]
